FAERS Safety Report 10367944 (Version 1)
Quarter: 2014Q3

REPORT INFORMATION
  Report Type: Spontaneous
  Country: US (occurrence: US)
  Receive Date: 20140807
  Receipt Date: 20140807
  Transmission Date: 20150326
  Serious: No
  Sender: FDA-Public Use
  Company Number: US-PFIZER INC-2014218130

PATIENT
  Sex: Male

DRUGS (4)
  1. LIPITOR [Suspect]
     Active Substance: ATORVASTATIN CALCIUM
     Dosage: 20 MG, DAILY
  2. GLUCOSAMINE [Suspect]
     Active Substance: GLUCOSAMINE
     Dosage: UNK
  3. BABY ASPIRIN [Suspect]
     Active Substance: ASPIRIN
     Dosage: UNK
  4. CHONDROITIN [Suspect]
     Active Substance: CHONDROITIN SULFATE (CHICKEN)
     Dosage: UNK

REACTIONS (1)
  - Abdominal discomfort [Unknown]
